FAERS Safety Report 13496371 (Version 1)
Quarter: 2017Q2

REPORT INFORMATION
  Report Type: Spontaneous
  Country: US (occurrence: US)
  Receive Date: 20170428
  Receipt Date: 20170428
  Transmission Date: 20170830
  Serious: Yes (Other)
  Sender: FDA-Public Use
  Company Number: US-AMGEN-USASP2017063266

PATIENT
  Age: 83 Year
  Sex: Male

DRUGS (25)
  1. ENBREL [Suspect]
     Active Substance: ETANERCEPT
     Indication: PSORIASIS
     Dosage: 50 MG, QWK
     Route: 065
     Dates: start: 201701
  2. ASPIRIN. [Concomitant]
     Active Substance: ASPIRIN
     Dosage: UNK, 3 TIMES/WK
  3. HYDROCODEINE [Concomitant]
     Active Substance: DIHYDROCODEINE PHOSPHATE
     Dosage: 5 MG, 3 OR 4 TABLET A DAY
  4. METOPROLOL TARTRATE. [Concomitant]
     Active Substance: METOPROLOL TARTRATE
     Indication: HYPERTENSION
     Dosage: 25 MG, UNK
     Dates: start: 200511
  5. PRIMIDONE. [Concomitant]
     Active Substance: PRIMIDONE
     Indication: TREMOR
     Dosage: 50 MG, UNK
     Dates: start: 200510
  6. SIMVASTATIN. [Concomitant]
     Active Substance: SIMVASTATIN
     Indication: BLOOD CHOLESTEROL ABNORMAL
     Dosage: UNK
     Dates: start: 199707
  7. MYLANTA [Concomitant]
     Active Substance: ALUMINUM HYDROXIDE\DIMETHICONE\MAGNESIUM HYDROXIDE
     Dosage: 7 OR 8 A DAY
  8. BISACODYL. [Concomitant]
     Active Substance: BISACODYL
     Dosage: 5 MG, UNK
     Dates: start: 201601
  9. DIAZEPAM. [Concomitant]
     Active Substance: DIAZEPAM
     Indication: PAIN
  10. FOLIC ACID. [Concomitant]
     Active Substance: FOLIC ACID
     Indication: CARDIAC DISORDER
     Dosage: UNK
     Dates: start: 200402
  11. METOPROLOL TARTRATE. [Concomitant]
     Active Substance: METOPROLOL TARTRATE
     Indication: HEART RATE ABNORMAL
  12. DICYCLOMINE [Concomitant]
     Active Substance: DICYCLOMINE HYDROCHLORIDE
     Indication: GASTROOESOPHAGEAL REFLUX DISEASE
     Dosage: UNK
     Dates: start: 201510
  13. NEXIUM [Concomitant]
     Active Substance: ESOMEPRAZOLE MAGNESIUM
     Indication: GASTROOESOPHAGEAL REFLUX DISEASE
     Dosage: 1 CAP 1/2 HR BEFORE BREAKFAST
  14. DIAZEPAM. [Concomitant]
     Active Substance: DIAZEPAM
     Indication: MUSCULOSKELETAL PAIN
     Dosage: 3 UNK, QD
     Dates: start: 2017
  15. HYDROCODEINE [Concomitant]
     Active Substance: DIHYDROCODEINE PHOSPHATE
     Dosage: 12 TABLETS A DAY
     Dates: start: 200210
  16. RANITIDINE. [Concomitant]
     Active Substance: RANITIDINE
     Indication: DYSPEPSIA
     Dosage: 100 MG, BID
     Dates: start: 199809
  17. TAMSULOSIN [Concomitant]
     Active Substance: TAMSULOSIN
     Indication: RENAL DISORDER
     Dosage: 4 MG, CAP 1/2 HOUR PRIOR TO LUNCH
  18. ALUDROX [Concomitant]
     Dosage: 7 OR 8 A DAY
  19. DIAZEPAM. [Concomitant]
     Active Substance: DIAZEPAM
     Indication: NECK PAIN
     Dosage: 3 TO 5 MG, 1 TO 3 A DAY
     Dates: start: 195605
  20. LISINOPRIL. [Concomitant]
     Active Substance: LISINOPRIL
     Indication: CARDIAC DISORDER
     Dosage: 40 MG, UNK
     Dates: start: 200502
  21. LISINOPRIL. [Concomitant]
     Active Substance: LISINOPRIL
     Indication: HYPERTENSION
  22. RANITIDINE. [Concomitant]
     Active Substance: RANITIDINE
     Dosage: 150 MG, UNK
  23. PREDNISONE. [Concomitant]
     Active Substance: PREDNISONE
     Indication: PSORIASIS
     Dosage: 10 MG, 1 AT DINNER
     Dates: start: 200806
  24. ASPIRIN. [Concomitant]
     Active Substance: ASPIRIN
     Indication: CARDIAC DISORDER
     Dosage: 81 MG, QD
     Dates: start: 200502
  25. FINASTERIDE. [Concomitant]
     Active Substance: FINASTERIDE
     Indication: URINARY TRACT DISORDER
     Dosage: 5 MG, UNK
     Dates: start: 201601

REACTIONS (19)
  - Weight decreased [Not Recovered/Not Resolved]
  - Therapeutic response unexpected [Not Recovered/Not Resolved]
  - Head discomfort [Not Recovered/Not Resolved]
  - Eye irritation [Not Recovered/Not Resolved]
  - Dysuria [Not Recovered/Not Resolved]
  - Oral discomfort [Not Recovered/Not Resolved]
  - Confusional state [Not Recovered/Not Resolved]
  - Hypoaesthesia [Not Recovered/Not Resolved]
  - Pain in extremity [Not Recovered/Not Resolved]
  - Pain [Not Recovered/Not Resolved]
  - Anorectal discomfort [Not Recovered/Not Resolved]
  - Cardiovascular disorder [Not Recovered/Not Resolved]
  - Tinnitus [Not Recovered/Not Resolved]
  - Musculoskeletal pain [Not Recovered/Not Resolved]
  - Eye haemorrhage [Not Recovered/Not Resolved]
  - Tremor [Not Recovered/Not Resolved]
  - Pruritus [Not Recovered/Not Resolved]
  - Limb discomfort [Not Recovered/Not Resolved]
  - Hypoacusis [Not Recovered/Not Resolved]

NARRATIVE: CASE EVENT DATE: 2017
